FAERS Safety Report 9390856 (Version 2)
Quarter: 2013Q4

REPORT INFORMATION
  Report Type: Spontaneous
  Country: US (occurrence: None)
  Receive Date: 20130705
  Receipt Date: 20131031
  Transmission Date: 20140711
  Serious: Yes (Disabling)
  Sender: FDA-Public Use
  Company Number: ACO_23870_2010

PATIENT
  Age: 58 Year
  Sex: Female
  Weight: 58 kg

DRUGS (10)
  1. AMPYRA (DALFAMPRIDINE) TABLET, 10MG [Suspect]
     Indication: MULTIPLE SCLEROSIS
     Route: 048
     Dates: start: 201006, end: 20100621
  2. FISH OIL (FISH OIL) [Concomitant]
  3. VITAMIN B2 (RIBOFLAVIN) [Concomitant]
  4. VESICARE (SOLIFENACIN SUCCINATE) [Concomitant]
  5. SYNTHROID (LEVOTHYROXINE SODIUM) [Concomitant]
  6. CRESTOR (ROSUVASTATIN CALCIUM) [Concomitant]
  7. VITAMIN D3 (COLECALCIFEROL) [Concomitant]
  8. METOPROLOL (METOPROLOL) [Concomitant]
  9. TOPAMAX (TOPIRAMATE) [Concomitant]
  10. VITAMIN B-1 [Concomitant]

REACTIONS (5)
  - Dysstasia [None]
  - Fatigue [None]
  - Somnolence [None]
  - Back pain [None]
  - Asthenia [None]
